FAERS Safety Report 23725014 (Version 4)
Quarter: 2024Q4

REPORT INFORMATION
  Report Type: Spontaneous
  Country: JP (occurrence: JP)
  Receive Date: 20240410
  Receipt Date: 20241018
  Transmission Date: 20250114
  Serious: Yes (Death, Life-Threatening, Hospitalization, Other)
  Sender: TAKEDA
  Company Number: JP-TAKEDA-2024TJP005127

PATIENT
  Age: 4 Year
  Sex: Female
  Weight: 9.44 kg

DRUGS (15)
  1. TEDUGLUTIDE [Suspect]
     Active Substance: TEDUGLUTIDE
     Indication: Short-bowel syndrome
     Dosage: 0.4 MILLIGRAM, QD
     Route: 058
     Dates: start: 20221003, end: 20230827
  2. TEDUGLUTIDE [Suspect]
     Active Substance: TEDUGLUTIDE
     Indication: Short-bowel syndrome
     Dosage: 0.4 MILLIGRAM, QD
     Route: 058
     Dates: start: 20221003, end: 20230827
  3. TEDUGLUTIDE [Suspect]
     Active Substance: TEDUGLUTIDE
     Indication: Short-bowel syndrome
     Dosage: 0.4 MILLIGRAM, QD
     Route: 058
     Dates: start: 20221003, end: 20230827
  4. TEDUGLUTIDE [Suspect]
     Active Substance: TEDUGLUTIDE
     Indication: Short-bowel syndrome
     Dosage: 0.4 MILLIGRAM, QD
     Route: 058
     Dates: start: 20221003, end: 20230827
  5. FUROSEMIDE [Concomitant]
     Active Substance: FUROSEMIDE
     Indication: Cardiac failure chronic
     Dosage: 16 MILLIGRAM, BID
     Route: 050
     Dates: end: 20230827
  6. SPIRONOLACTONE [Concomitant]
     Active Substance: SPIRONOLACTONE
     Indication: Cardiac failure chronic
     Dosage: 16 MILLIGRAM, BID
     Route: 050
     Dates: end: 20230827
  7. URSO [Concomitant]
     Active Substance: URSODIOL
     Indication: Cholestasis
     Dosage: 10 MILLIGRAM, TID
     Route: 050
     Dates: start: 20220723, end: 20230827
  8. URSO [Concomitant]
     Active Substance: URSODIOL
     Indication: Hepatic function abnormal
  9. LEVOCARNITINE [Concomitant]
     Active Substance: LEVOCARNITINE
     Indication: Carnitine decreased
     Dosage: 3 MILLILITER, BID
     Route: 050
     Dates: start: 20220723, end: 20230827
  10. TOLVAPTAN [Concomitant]
     Active Substance: TOLVAPTAN
     Indication: Cardiac failure chronic
     Dosage: 2.4 MILLIGRAM, QD
     Route: 050
     Dates: end: 20230827
  11. BISOPROLOL FUMARATE [Concomitant]
     Active Substance: BISOPROLOL FUMARATE
     Indication: Cardiac failure chronic
     Dosage: 0.32 MILLIGRAM, QD
     Route: 050
     Dates: end: 20230827
  12. ZINC [Concomitant]
     Active Substance: ZINC
     Indication: Zinc deficiency
     Dosage: 25 MILLIGRAM, BID
     Route: 050
  13. ENALAPRIL MALEATE [Concomitant]
     Active Substance: ENALAPRIL MALEATE
     Indication: Cardiac failure chronic
     Dosage: 0.8 MILLIGRAM, QD
     Route: 050
  14. TRICHLORMETHIAZIDE [Concomitant]
     Active Substance: TRICHLORMETHIAZIDE
     Indication: Cardiac failure chronic
     Dosage: 0.8 MILLIGRAM, QD
     Route: 050
  15. AMINO ACIDS\CARBOHYDRATES\MINERALS\SOYBEAN OIL\VITAMINS [Concomitant]
     Active Substance: AMINO ACIDS\CARBOHYDRATES\MINERALS\SOYBEAN OIL\VITAMINS
     Dosage: 35 GRAM
     Route: 050

REACTIONS (13)
  - Multiple organ dysfunction syndrome [Fatal]
  - Candida test positive [Fatal]
  - Staphylococcus test positive [Fatal]
  - Pulmonary hypertension [Fatal]
  - Biliary tract infection [Fatal]
  - Gallbladder enlargement [Recovering/Resolving]
  - Pulmonary haemorrhage [Unknown]
  - Device related infection [Unknown]
  - Sepsis [Fatal]
  - Endocarditis [Fatal]
  - Infective aneurysm [Fatal]
  - Aneurysm ruptured [Fatal]
  - Hepatic failure [Fatal]

NARRATIVE: CASE EVENT DATE: 20230706
